FAERS Safety Report 14582122 (Version 1)
Quarter: 2018Q1

REPORT INFORMATION
  Report Type: Spontaneous
  Country: IT (occurrence: IT)
  Receive Date: 20180228
  Receipt Date: 20180228
  Transmission Date: 20180509
  Serious: Yes (Other)
  Sender: FDA-Public Use
  Company Number: IT-TEVA-2018-IT-860233

PATIENT
  Age: 42 Year
  Sex: Male

DRUGS (4)
  1. EUTIROX 75 MICROGRAMMI COMPRESSE [Concomitant]
  2. CLOZAPINE. [Suspect]
     Active Substance: CLOZAPINE
     Indication: BIPOLAR DISORDER
     Route: 048
     Dates: start: 20171120, end: 20171123
  3. TOLEP 600 MG COMPRESSE [Suspect]
     Active Substance: OXCARBAZEPINE
     Indication: BIPOLAR DISORDER
     Route: 048
     Dates: start: 20171120, end: 20171123
  4. TAVOR (LORAZEPAM) [Suspect]
     Active Substance: LORAZEPAM
     Indication: BIPOLAR DISORDER
     Route: 048
     Dates: start: 20171120, end: 20171123

REACTIONS (4)
  - Confusional state [Recovering/Resolving]
  - Disorientation [Recovering/Resolving]
  - Motor dysfunction [Recovering/Resolving]
  - Sopor [Recovering/Resolving]

NARRATIVE: CASE EVENT DATE: 20171123
